FAERS Safety Report 7959027-5 (Version None)
Quarter: 2011Q4

REPORT INFORMATION
  Report Type: 
  Country: None (occurrence: None)
  Receive Date: 20111206
  Receipt Date: 20111123
  Transmission Date: 20120403
  Serious: Yes (Life-Threatening, Hospitalization)
  Sender: FDA-Public Use
  Company Number: US-CELGENEUS-163-21880-11100952

PATIENT
  Sex: Female

DRUGS (9)
  1. REVLIMID [Suspect]
     Indication: MULTIPLE MYELOMA
     Dosage: 5 MILLIGRAM
     Route: 048
     Dates: start: 20080201
  2. PROTONIX [Concomitant]
     Route: 065
  3. METOPROLOL TARTRATE [Concomitant]
     Dosage: 25 MILLIGRAM
     Route: 048
  4. LOPRESSOR [Concomitant]
     Dosage: 25 MILLIGRAM
     Route: 065
  5. COUMADIN [Concomitant]
     Route: 065
  6. PLAVIX [Concomitant]
     Route: 065
  7. ALTACE [Concomitant]
     Dosage: 2.5 MILLIGRAM
     Route: 065
  8. ASPIRIN [Concomitant]
     Route: 065
  9. OMEPRAZOLE [Concomitant]
     Dosage: 40 MILLIGRAM
     Route: 048

REACTIONS (1)
  - PEPTIC ULCER HAEMORRHAGE [None]
